FAERS Safety Report 9205708 (Version 4)
Quarter: 2013Q2

REPORT INFORMATION
  Report Type: Spontaneous
  Country: JP (occurrence: JP)
  Receive Date: 20130403
  Receipt Date: 20130423
  Transmission Date: 20140414
  Serious: Yes (Hospitalization, Other)
  Sender: FDA-Public Use
  Company Number: JP-PFIZER INC-2013102894

PATIENT
  Age: 74 Year
  Sex: Male

DRUGS (4)
  1. ARICEPT [Suspect]
     Indication: DEMENTIA
     Dosage: UNK
     Route: 048
  2. HEPARIN [Suspect]
     Indication: ATRIAL FIBRILLATION
     Dosage: UNK
  3. CLOPIDOGREL SULFATE [Suspect]
     Indication: CAROTID ARTERY OCCLUSION
     Dosage: UNK
  4. ASPIRIN [Suspect]
     Dosage: UNK

REACTIONS (1)
  - Diverticulum intestinal haemorrhagic [Unknown]
